FAERS Safety Report 16973242 (Version 1)
Quarter: 2019Q4

REPORT INFORMATION
  Report Type: Spontaneous
  Country: US (occurrence: US)
  Receive Date: 20191030
  Receipt Date: 20191030
  Transmission Date: 20200122
  Serious: No
  Sender: FDA-Public Use
  Company Number: US-TEVA-2019-US-1129089

PATIENT
  Sex: Female

DRUGS (4)
  1. PERPHENAZINE TABLETS [Suspect]
     Active Substance: PERPHENAZINE
     Indication: DEPRESSION
     Route: 065
     Dates: start: 201909
  2. PERPHENAZINE TABLETS [Suspect]
     Active Substance: PERPHENAZINE
     Indication: ANXIETY
  3. CLONAZEPAM. [Concomitant]
     Active Substance: CLONAZEPAM
     Route: 065
  4. SERTRALINE [Concomitant]
     Active Substance: SERTRALINE HYDROCHLORIDE
     Route: 065

REACTIONS (1)
  - Muscle twitching [Unknown]
